FAERS Safety Report 19324828 (Version 1)
Quarter: 2021Q2

REPORT INFORMATION
  Report Type: Report from Study
  Country: SA (occurrence: SA)
  Receive Date: 20210528
  Receipt Date: 20210528
  Transmission Date: 20210717
  Serious: Yes (Death, Other)
  Sender: FDA-Public Use
  Company Number: SA-ALS-000272

PATIENT
  Age: 57 Year
  Sex: Female

DRUGS (3)
  1. IMATINIB/IMATINIB MESILATE [Suspect]
     Active Substance: IMATINIB
     Indication: CHRONIC MYELOID LEUKAEMIA
     Dosage: 600 MG/DAY
     Route: 065
  2. DASATINIB. [Suspect]
     Active Substance: DASATINIB
     Indication: CHRONIC MYELOID LEUKAEMIA
     Dosage: 100 MG/DAY
     Route: 065
  3. METFORMIN [Suspect]
     Active Substance: METFORMIN HYDROCHLORIDE
     Indication: DIABETES MELLITUS
     Route: 065

REACTIONS (19)
  - Portal hypertension [Unknown]
  - Pallor [Unknown]
  - Diarrhoea [Unknown]
  - Oedema [Unknown]
  - Philadelphia positive chronic myeloid leukaemia [Unknown]
  - Hepatosplenomegaly [Unknown]
  - Hypothyroidism [Unknown]
  - Pleural effusion [Unknown]
  - Generalised tonic-clonic seizure [Unknown]
  - Autoimmune disorder [Fatal]
  - Septic shock [Fatal]
  - Splenic lesion [Unknown]
  - Blast cell crisis [Unknown]
  - Drug ineffective [Unknown]
  - Diarrhoea haemorrhagic [Unknown]
  - Tumour invasion [Unknown]
  - Pulmonary mass [Unknown]
  - Rectal adenocarcinoma [Fatal]
  - Pulmonary embolism [Fatal]

NARRATIVE: CASE EVENT DATE: 200804
